FAERS Safety Report 6462041-2 (Version None)
Quarter: 2009Q4

REPORT INFORMATION
  Report Type: 
  Country: None (occurrence: None)
  Receive Date: 20091130
  Receipt Date: 20091112
  Transmission Date: 20100525
  Serious: Yes (Hospitalization, Other)
  Sender: FDA-Public Use
  Company Number: PHHY2009TH51914

PATIENT
  Age: 16 Year
  Sex: Female

DRUGS (1)
  1. CARBAMAZEPINE [Suspect]
     Indication: EPILEPSY

REACTIONS (4)
  - ACUTE PSYCHOSIS [None]
  - AGGRESSION [None]
  - DELUSION [None]
  - HALLUCINATIONS, MIXED [None]
